FAERS Safety Report 12320106 (Version 1)
Quarter: 2016Q2

REPORT INFORMATION
  Report Type: Other
  Country: US (occurrence: US)
  Receive Date: 20160429
  Receipt Date: 20160429
  Transmission Date: 20160815
  Serious: Yes (Other)
  Sender: FDA-Public Use
  Company Number: US-GUTHY-RENKER LLC-1051238

PATIENT
  Age: 36 Year
  Sex: Female

DRUGS (1)
  1. IT COSMETICS BYE BYE FOUNDATION W/SPF 50 + [Suspect]
     Active Substance: TITANIUM DIOXIDE\ZINC OXIDE
     Route: 061
     Dates: start: 20160215, end: 20160228

REACTIONS (1)
  - Cellulitis staphylococcal [Recovered/Resolved]

NARRATIVE: CASE EVENT DATE: 20160221
